FAERS Safety Report 8513272-9 (Version None)
Quarter: 2012Q3

REPORT INFORMATION
  Report Type: 
  Country: None (occurrence: None)
  Receive Date: 20120716
  Receipt Date: 20120705
  Transmission Date: 20120928
  Serious: Yes (Other)
  Sender: FDA-Public Use
  Company Number: US-ELI_LILLY_AND_COMPANY-US201207001628

PATIENT
  Sex: Female

DRUGS (2)
  1. METFORMIN HYDROCHLORIDE [Concomitant]
     Indication: TYPE 2 DIABETES MELLITUS
     Dosage: UNK, BID
     Route: 048
  2. BYETTA [Suspect]
     Indication: TYPE 2 DIABETES MELLITUS
     Dosage: 10 UG, UNK
     Route: 058

REACTIONS (5)
  - LUNG NEOPLASM MALIGNANT [None]
  - PRODUCT QUALITY ISSUE [None]
  - LYMPHOMA [None]
  - BRAIN NEOPLASM MALIGNANT [None]
  - BRAIN CANCER METASTATIC [None]
